FAERS Safety Report 5359091-6 (Version None)
Quarter: 2007Q2

REPORT INFORMATION
  Report Type: 
  Country: None (occurrence: None)
  Receive Date: 20070615
  Receipt Date: 20070605
  Transmission Date: 20071010
  Serious: Yes (Hospitalization)
  Sender: FDA-Public Use
  Company Number: GB-BRISTOL-MYERS SQUIBB COMPANY-13810320

PATIENT
  Age: 61 Year
  Sex: Female

DRUGS (5)
  1. METFORMIN HCL [Suspect]
     Indication: DIABETES MELLITUS NON-INSULIN-DEPENDENT
     Route: 048
  2. ROFECOXIB [Interacting]
     Indication: PAIN
     Route: 047
  3. COUMADIN [Concomitant]
     Indication: COAGULOPATHY
  4. FUROSEMIDE [Concomitant]
  5. RAMIPRIL [Concomitant]

REACTIONS (4)
  - DRUG INTERACTION [None]
  - GINGIVAL BLEEDING [None]
  - LACTIC ACIDOSIS [None]
  - PROTHROMBIN TIME PROLONGED [None]
